FAERS Safety Report 24304048 (Version 2)
Quarter: 2024Q3

REPORT INFORMATION
  Report Type: Spontaneous
  Country: FI (occurrence: FI)
  Receive Date: 20240910
  Receipt Date: 20240930
  Transmission Date: 20241016
  Serious: Yes (Hospitalization, Disabling)
  Sender: MYLAN
  Company Number: FI-Orion Corporation ORION PHARMA-METF2024-0012

PATIENT
  Age: 59 Year
  Sex: Male

DRUGS (3)
  1. METFORMIN [Suspect]
     Active Substance: METFORMIN HYDROCHLORIDE
     Indication: Product used for unknown indication
     Dosage: 1500 MILLIGRAM, QD (STRENGTH: 500 MG, 2+1 TABLET PER DAY)
     Route: 065
  2. ALLOPURINOL [Suspect]
     Active Substance: ALLOPURINOL
     Indication: Gout
     Dosage: 100 MILLIGRAM, QD, STRENGTH: 100 MG
     Route: 065
  3. RAMIPRIL [Suspect]
     Active Substance: RAMIPRIL
     Indication: Product used for unknown indication
     Dosage: 5 MILLIGRAM, QD, STRENGTH: 5 MG
     Route: 065

REACTIONS (7)
  - Amnesia [Recovered/Resolved]
  - Disorientation [Recovered/Resolved]
  - Hallucination [Recovered/Resolved]
  - Polyneuropathy [Unknown]
  - Visual impairment [Unknown]
  - Weight decreased [Unknown]
  - Anaemia macrocytic [Unknown]

NARRATIVE: CASE EVENT DATE: 20200101
